FAERS Safety Report 15027330 (Version 2)
Quarter: 2018Q4

REPORT INFORMATION
  Report Type: Report from Study
  Country: DE (occurrence: DE)
  Receive Date: 20180619
  Receipt Date: 20181105
  Transmission Date: 20190204
  Serious: Yes (Death)
  Sender: FDA-Public Use
  Company Number: DE-TEVA-2018-DE-909102

PATIENT
  Age: 69 Year
  Sex: Female
  Weight: 56 kg

DRUGS (13)
  1. CAPECITABINE. [Suspect]
     Active Substance: CAPECITABINE
     Route: 048
     Dates: start: 20160401, end: 20160414
  2. CAPECITABINE. [Suspect]
     Active Substance: CAPECITABINE
     Indication: BREAST CANCER
     Route: 048
     Dates: start: 20160714, end: 20160714
  3. CAPECITABINE. [Suspect]
     Active Substance: CAPECITABINE
     Route: 048
     Dates: start: 20160520, end: 20160602
  4. CAPECITABINE. [Suspect]
     Active Substance: CAPECITABINE
     Route: 048
     Dates: start: 20160701, end: 20160714
  5. CAPECITABINE. [Suspect]
     Active Substance: CAPECITABINE
     Route: 048
     Dates: start: 20160429, end: 20160512
  6. CAPECITABINE. [Suspect]
     Active Substance: CAPECITABINE
     Route: 048
     Dates: start: 20160610, end: 20160623
  7. CAPECITABINE. [Suspect]
     Active Substance: CAPECITABINE
     Route: 048
     Dates: start: 20160311, end: 20160324
  8. RANITIDIN [Concomitant]
     Active Substance: RANITIDINE HYDROCHLORIDE
     Indication: PROPHYLAXIS
     Dosage: BEFORE ADMINISTRATION OF AVASTIN
     Route: 042
     Dates: start: 20160310
  9. BEVACIZUMAB. [Suspect]
     Active Substance: BEVACIZUMAB
     Route: 042
     Dates: start: 20160714, end: 20160714
  10. PREGABADOR [Concomitant]
     Active Substance: PREGABALIN
     Indication: NEURALGIA
     Dosage: 75 MILLIGRAM DAILY;
     Route: 048
     Dates: start: 20160310
  11. FENISTIL (GERMANY) [Concomitant]
     Indication: HYPERSENSITIVITY
     Dosage: BEFORE ADMINISTRATION OF AVASTIN
     Route: 042
     Dates: start: 20160310
  12. SOLU DECORTIN [Concomitant]
     Active Substance: PREDNISOLONE SODIUM SUCCINATE
     Indication: HYPERSENSITIVITY
     Dosage: BEFORE ADMINISTRATION OF AVASTIN
     Route: 042
     Dates: start: 20160310
  13. BEVACIZUMAB. [Suspect]
     Active Substance: BEVACIZUMAB
     Indication: BREAST CANCER
     Route: 042
     Dates: start: 20160310, end: 20160714

REACTIONS (2)
  - General physical health deterioration [Fatal]
  - Apathy [Fatal]

NARRATIVE: CASE EVENT DATE: 20160720
